FAERS Safety Report 17498947 (Version 1)
Quarter: 2020Q1

REPORT INFORMATION
  Report Type: Spontaneous
  Country: US (occurrence: US)
  Receive Date: 20200305
  Receipt Date: 20200305
  Transmission Date: 20200409
  Serious: Yes (Hospitalization)
  Sender: FDA-Public Use
  Company Number: US-SUN PHARMACEUTICAL INDUSTRIES LTD-2020R1-238768

PATIENT
  Age: 70 Year
  Sex: Male

DRUGS (3)
  1. BACLOFEN. [Suspect]
     Active Substance: BACLOFEN
     Indication: NEUROPATHY PERIPHERAL
  2. BACLOFEN. [Suspect]
     Active Substance: BACLOFEN
     Indication: HEMIPLEGIA
  3. BACLOFEN. [Suspect]
     Active Substance: BACLOFEN
     Indication: CHRONIC OBSTRUCTIVE PULMONARY DISEASE
     Dosage: UNK
     Route: 065

REACTIONS (1)
  - Intestinal pseudo-obstruction [Recovering/Resolving]
